FAERS Safety Report 10261917 (Version 1)
Quarter: 2014Q2

REPORT INFORMATION
  Report Type: Spontaneous
  Country: US (occurrence: US)
  Receive Date: 20140626
  Receipt Date: 20140626
  Transmission Date: 20141212
  Serious: No
  Sender: FDA-Public Use
  Company Number: US-ASTRAZENECA-2014SE30087

PATIENT
  Age: 71 Year
  Sex: Female
  Weight: 59.4 kg

DRUGS (8)
  1. NEXIUM [Suspect]
     Indication: GASTROOESOPHAGEAL REFLUX DISEASE
     Route: 048
     Dates: start: 2004
  2. BRILINTA [Suspect]
     Indication: STENT PLACEMENT
     Route: 048
     Dates: start: 20140407
  3. LIPITOR [Concomitant]
     Indication: BLOOD CHOLESTEROL INCREASED
     Route: 048
     Dates: start: 2004
  4. ASPIRIN [Concomitant]
     Indication: PROPHYLAXIS
     Route: 048
     Dates: start: 2009
  5. BENECAR [Concomitant]
     Indication: BLOOD PRESSURE ABNORMAL
     Route: 048
     Dates: start: 1994
  6. VERAPAMIL ER [Concomitant]
     Indication: BLOOD PRESSURE ABNORMAL
     Route: 048
     Dates: start: 1994
  7. LUMAGEN [Concomitant]
     Indication: GLAUCOMA
     Dosage: 1 DROP EACH EYE HS
     Route: 050
     Dates: start: 2004
  8. TYLENOL EXTRA STRENGHT [Concomitant]
     Indication: ARTHRITIS
     Dosage: UNKNOWN PRN
     Route: 048
     Dates: start: 1994

REACTIONS (4)
  - Contusion [Unknown]
  - Adverse event [Unknown]
  - Gastritis [Unknown]
  - Nausea [Unknown]
